FAERS Safety Report 8999328 (Version 1)
Quarter: 2013Q1

REPORT INFORMATION
  Report Type: Report from Study
  Country: CA (occurrence: CA)
  Receive Date: 20130103
  Receipt Date: 20130103
  Transmission Date: 20140127
  Serious: Yes (Other)
  Sender: FDA-Public Use
  Company Number: CA-JNJFOC-20130100696

PATIENT
  Age: 33 Year
  Sex: Male
  Weight: 89.2 kg

DRUGS (10)
  1. REMICADE [Suspect]
     Indication: CROHN^S DISEASE
     Route: 042
     Dates: start: 20121016
  2. REMICADE [Suspect]
     Indication: CROHN^S DISEASE
     Route: 042
     Dates: start: 201110
  3. TYLENOL [Concomitant]
     Indication: PREMEDICATION
     Route: 048
  4. BENADRYL [Concomitant]
     Indication: PREMEDICATION
     Route: 048
  5. IMURAN [Concomitant]
     Route: 048
  6. ALL OTHER THERAPEUTICS [Concomitant]
     Route: 065
  7. SINGULAIR [Concomitant]
     Route: 048
  8. PANTOLOC [Concomitant]
     Route: 048
  9. FOLIC ACID [Concomitant]
     Route: 048
  10. MULTIVIT [Concomitant]
     Route: 048

REACTIONS (4)
  - Joint dislocation [Recovered/Resolved]
  - Pharyngitis [Recovered/Resolved]
  - Tooth extraction [Recovered/Resolved]
  - Sinusitis [Recovered/Resolved]
